FAERS Safety Report 7434165-4 (Version None)
Quarter: 2011Q2

REPORT INFORMATION
  Report Type: 
  Country: None (occurrence: None)
  Receive Date: 20110425
  Receipt Date: 20110418
  Transmission Date: 20111010
  Serious: Yes (Hospitalization, Other)
  Sender: FDA-Public Use
  Company Number: US-PFIZER INC-2011085144

PATIENT
  Sex: Female
  Weight: 79 kg

DRUGS (1)
  1. CLINDAMYCIN HCL [Suspect]
     Indication: GINGIVAL INFECTION
     Dosage: 150 MG, 3X/DAY
     Dates: start: 20110309, end: 20110301

REACTIONS (1)
  - CLOSTRIDIAL INFECTION [None]
